FAERS Safety Report 7731650-2 (Version None)
Quarter: 2011Q3

REPORT INFORMATION
  Report Type: 
  Country: None (occurrence: None)
  Receive Date: 20110906
  Receipt Date: 20110826
  Transmission Date: 20111222
  Serious: Yes (Life-Threatening, Hospitalization)
  Sender: FDA-Public Use
  Company Number: ES-JNJFOC-20110808922

PATIENT
  Age: 49 Year
  Sex: Male

DRUGS (2)
  1. TOPIRAMATE [Suspect]
     Route: 048
  2. TOPIRAMATE [Suspect]
     Indication: PRODUCT USED FOR UNKNOWN INDICATION
     Route: 048

REACTIONS (6)
  - CONVULSION [None]
  - POISONING [None]
  - SUICIDE ATTEMPT [None]
  - METABOLIC ACIDOSIS [None]
  - OVERDOSE [None]
  - UNRESPONSIVE TO STIMULI [None]
